FAERS Safety Report 5129019-2 (Version None)
Quarter: 2006Q4

REPORT INFORMATION
  Report Type: 
  Country: None (occurrence: None)
  Receive Date: 20061017
  Receipt Date: 20060825
  Transmission Date: 20070319
  Serious: Yes (Hospitalization, Disabling)
  Sender: FDA-Public Use
  Company Number: US-BOEHRINGER INGELHEIM PHARMACEUTICALS, INC.-2006-BP-09926BP

PATIENT
  Sex: Male

DRUGS (9)
  1. FLOMAX [Suspect]
     Indication: BENIGN PROSTATIC HYPERPLASIA
     Route: 048
     Dates: start: 20020801, end: 20060823
  2. LOPRESSOR [Concomitant]
     Indication: HYPERTENSION
  3. DIABETES MEDICATIONS [Concomitant]
     Indication: DIABETES MELLITUS
  4. VIAMOX [Concomitant]
  5. PRED FORTE [Concomitant]
  6. ALAMAST [Concomitant]
  7. PREDNISONE TAB [Concomitant]
  8. HEART MEDICATION [Concomitant]
     Indication: CARDIAC DISORDER
  9. HIGH BLOOD PRESSURE MEDICATION [Concomitant]
     Indication: HYPERTENSION

REACTIONS (3)
  - BLINDNESS UNILATERAL [None]
  - MYOCARDIAL INFARCTION [None]
  - POST PROCEDURAL COMPLICATION [None]
